FAERS Safety Report 8816892 (Version 1)
Quarter: 2012Q4

REPORT INFORMATION
  Report Type: Spontaneous
  Country: BR (occurrence: None)
  Receive Date: 20121002
  Receipt Date: 20121002
  Transmission Date: 20130627
  Serious: Yes (Hospitalization)
  Sender: FDA-Public Use
  Company Number: ENTC2012-0416

PATIENT
  Age: 81 Year
  Sex: Female

DRUGS (4)
  1. STALEVO (LEVODOPA, CARBIDOPA, ENTACAPONE) [Suspect]
     Indication: PARKINSON^S DISEASE
     Route: 048
  2. DAFLON [Concomitant]
  3. LEXAPRO [Concomitant]
  4. OMEPRAZOLE [Concomitant]

REACTIONS (5)
  - Depressed level of consciousness [None]
  - Nervousness [None]
  - Dysphagia [None]
  - Nausea [None]
  - Wrong technique in drug usage process [None]
